FAERS Safety Report 25638474 (Version 3)
Quarter: 2025Q3

REPORT INFORMATION
  Report Type: Spontaneous
  Country: US (occurrence: US)
  Receive Date: 20250804
  Receipt Date: 20250826
  Transmission Date: 20251021
  Serious: No
  Sender: PFIZER
  Company Number: US-PFIZER INC-202500155003

PATIENT
  Age: 40 Year
  Sex: Female
  Weight: 103 kg

DRUGS (5)
  1. PAXLOVID [Suspect]
     Active Substance: NIRMATRELVIR\RITONAVIR
     Indication: COVID-19 treatment
     Dosage: AS PRESCRIBED, 2X/DAY
     Route: 048
     Dates: start: 20250717, end: 20250719
  2. CHOLESTYRAMINE [Concomitant]
     Active Substance: CHOLESTYRAMINE
     Indication: Diarrhoea
     Dosage: UNK, 2X/DAY
  3. CLINDAMYCIN [Concomitant]
     Active Substance: CLINDAMYCIN
     Indication: Folliculitis
  4. LUMIFY [Concomitant]
     Active Substance: BRIMONIDINE TARTRATE
  5. ELIDEL [Concomitant]
     Active Substance: PIMECROLIMUS

REACTIONS (10)
  - Abdominal discomfort [Unknown]
  - Dry mouth [Unknown]
  - Dysgeusia [Recovered/Resolved]
  - Rash [Recovered/Resolved]
  - Heart rate increased [Recovered/Resolved]
  - Breath odour [Recovering/Resolving]
  - Fungal infection [Unknown]
  - Escherichia infection [Unknown]
  - Cystitis [Unknown]
  - Gastrooesophageal reflux disease [Unknown]

NARRATIVE: CASE EVENT DATE: 20250101
